FAERS Safety Report 16974157 (Version 1)
Quarter: 2019Q4

REPORT INFORMATION
  Report Type: Spontaneous
  Country: US (occurrence: US)
  Receive Date: 20191030
  Receipt Date: 20191030
  Transmission Date: 20200122
  Serious: Yes (Other)
  Sender: FDA-Public Use
  Company Number: US-PFIZER INC-2019463568

PATIENT
  Age: 69 Year
  Sex: Female
  Weight: 72.57 kg

DRUGS (2)
  1. ESTRADIOL CIPIONATE [Suspect]
     Active Substance: ESTRADIOL CYPIONATE
     Dosage: UNK
     Dates: start: 2017, end: 20191021
  2. NORETHINDRONE [NORETHISTERONE] [Suspect]
     Active Substance: NORETHINDRONE
     Dosage: UNK
     Dates: start: 2017, end: 20191021

REACTIONS (4)
  - Vaginal haemorrhage [Recovering/Resolving]
  - Brain injury [Unknown]
  - Memory impairment [Unknown]
  - Carbon monoxide poisoning [Unknown]

NARRATIVE: CASE EVENT DATE: 20191007
